FAERS Safety Report 25790650 (Version 1)
Quarter: 2025Q3

REPORT INFORMATION
  Report Type: Spontaneous
  Country: US (occurrence: None)
  Receive Date: 20250910
  Receipt Date: 20250910
  Transmission Date: 20251020
  Serious: Yes (Hospitalization)
  Sender: FDA-CTU
  Company Number: None

PATIENT
  Sex: Female

DRUGS (2)
  1. SILDENAFIL CITRATE [Suspect]
     Active Substance: SILDENAFIL CITRATE
     Indication: Pulmonary arterial hypertension
     Dosage: 20 MG 3 TIMES A DAY?
     Route: 048
     Dates: start: 20250724
  2. TREPROSTINIL [Suspect]
     Active Substance: TREPROSTINIL

REACTIONS (8)
  - Cerebrovascular accident [None]
  - Amnesia [None]
  - Cardiac arrest [None]
  - Blood pressure decreased [None]
  - Pneumonia [None]
  - Feeling cold [None]
  - Hypophagia [None]
  - Arthralgia [None]
